FAERS Safety Report 10330618 (Version 2)
Quarter: 2014Q3

REPORT INFORMATION
  Report Type: Report from Study
  Country: US (occurrence: US)
  Receive Date: 20140722
  Receipt Date: 20140722
  Transmission Date: 20150326
  Serious: Yes (Hospitalization)
  Sender: FDA-Public Use
  Company Number: US-MERCK-1406USA013507

PATIENT
  Age: 41 Year
  Sex: Female
  Weight: 61.1 kg

DRUGS (14)
  1. DILAUDID [Concomitant]
     Active Substance: HYDROMORPHONE HYDROCHLORIDE
     Indication: ABDOMINAL PAIN
     Dosage: DAILY DOSE 4 MG, PRN
     Route: 048
     Dates: start: 20140606
  2. MELATONIN [Concomitant]
     Active Substance: MELATONIN
     Indication: INSOMNIA
     Dosage: 20 MG, QD
     Route: 048
     Dates: start: 20140620
  3. ZOFRAN [Concomitant]
     Active Substance: ONDANSETRON HYDROCHLORIDE
     Indication: VOMITING
  4. METHADONE HYDROCHLORIDE. [Concomitant]
     Active Substance: METHADONE HYDROCHLORIDE
     Indication: ABDOMINAL PAIN
     Dosage: DAILY DOSE 10 MG, PRN
     Route: 048
     Dates: start: 20140606
  5. MORPHINE SULFATE. [Concomitant]
     Active Substance: MORPHINE SULFATE
     Indication: PAIN
     Dosage: DAILY DOSE 30 MG, PRN
     Route: 048
     Dates: start: 20140110
  6. SENNA LAX (SENNOSIDES) [Concomitant]
     Indication: CONSTIPATION
     Dosage: 8.6 MG, BID
     Route: 048
     Dates: start: 20140110
  7. MAGNESIUM (UNSPECIFIED) [Concomitant]
     Active Substance: MAGNESIUM
     Indication: HYPOMAGNESAEMIA
     Dosage: 2 TABLETS, BID
     Route: 048
     Dates: start: 20140502
  8. HYDROMORPHONE [Concomitant]
     Active Substance: HYDROMORPHONE
     Indication: ABDOMINAL PAIN
     Dosage: DAILY DOSE 4 MG, PRN
     Route: 048
     Dates: start: 20140606
  9. ZOLEDRONIC ACID [Concomitant]
     Active Substance: ZOLEDRONIC ACID
     Indication: HYPERCALCAEMIA
     Dosage: TOTAL DAILY DOSE 4 MG, ONCE
     Route: 042
     Dates: start: 20140620, end: 20140620
  10. MAGNESIUM SULFATE [Concomitant]
     Active Substance: MAGNESIUM SULFATE
     Indication: HYPOMAGNESAEMIA
     Dosage: TOTAL DAILY DOSE 32 MILLIEQUIVALENT, PRN
     Route: 042
     Dates: start: 20140620
  11. COMPAZINE [Concomitant]
     Active Substance: PROCHLORPERAZINE MALEATE
     Indication: VOMITING
     Dosage: DAILY DOSE 10 MG, PRN
     Route: 048
     Dates: start: 20140220
  12. COMPAZINE [Concomitant]
     Active Substance: PROCHLORPERAZINE MALEATE
     Indication: NAUSEA
  13. MK-3475 [Suspect]
     Active Substance: PEMBROLIZUMAB
     Indication: SQUAMOUS CELL CARCINOMA OF THE CERVIX
     Dosage: 10 MG/KG, QOW; DOSE REPORTED AS 100, DOSE UNITS UNKNOWN
     Route: 042
     Dates: start: 20140521
  14. ZOFRAN [Concomitant]
     Active Substance: ONDANSETRON HYDROCHLORIDE
     Indication: NAUSEA
     Dosage: DAILY DOSE 8 MG, PRN
     Route: 048
     Dates: start: 20140220

REACTIONS (1)
  - Abdominal pain [Not Recovered/Not Resolved]

NARRATIVE: CASE EVENT DATE: 20140624
